FAERS Safety Report 7748778-3 (Version None)
Quarter: 2011Q3

REPORT INFORMATION
  Report Type: 
  Country: None (occurrence: None)
  Receive Date: 20110913
  Receipt Date: 20110913
  Transmission Date: 20111222
  Serious: Yes (Life-Threatening, Hospitalization)
  Sender: FDA-Public Use
  Company Number: None

PATIENT
  Age: 68 Year
  Sex: Male
  Weight: 115.8 kg

DRUGS (3)
  1. ASPIRIN [Suspect]
     Dosage: LOVENOX 120MG
     Dates: start: 20110505
  2. LOVENOX [Suspect]
     Indication: CEREBROVASCULAR ACCIDENT
     Dosage: LOVENOX 40 MG AND 120 MG DAILY OF BID SUBCUTANEOUS
     Route: 058
     Dates: start: 20110511
  3. LOVENOX [Suspect]
     Indication: CEREBROVASCULAR ACCIDENT
     Dosage: LOVENOX 40 MG AND 120 MG DAILY OF BID SUBCUTANEOUS
     Route: 058
     Dates: start: 20110427, end: 20110429

REACTIONS (3)
  - SHOCK HAEMORRHAGIC [None]
  - PRESYNCOPE [None]
  - GASTROINTESTINAL HAEMORRHAGE [None]
